FAERS Safety Report 6573221-X (Version None)
Quarter: 2010Q1

REPORT INFORMATION
  Report Type: 
  Country: None (occurrence: None)
  Receive Date: 20100208
  Receipt Date: 20100201
  Transmission Date: 20100710
  Serious: Yes (Other)
  Sender: FDA-Public Use
  Company Number: TW-JNJCH-2010003291

PATIENT
  Age: 51 Year
  Sex: Male

DRUGS (1)
  1. REGAINE 5% [Suspect]
     Indication: ALOPECIA
     Dosage: TEXT:LESS THEN 50MG QD
     Route: 061

REACTIONS (3)
  - DIZZINESS [None]
  - FALL [None]
  - VISION BLURRED [None]
